FAERS Safety Report 19207064 (Version 1)
Quarter: 2021Q2

REPORT INFORMATION
  Report Type: Report from Study
  Country: FR (occurrence: FR)
  Receive Date: 20210430
  Receipt Date: 20210430
  Transmission Date: 20210717
  Serious: Yes (Death, Other)
  Sender: FDA-Public Use
  Company Number: FR-DSJP-DSE-2021-112000

PATIENT
  Age: 48 Year
  Sex: Female

DRUGS (2)
  1. ENHERTU [Suspect]
     Active Substance: FAM-TRASTUZUMAB DERUXTECAN-NXKI
     Indication: HER2 POSITIVE BREAST CANCER
     Dosage: 1 DF, CYCLIC (ONCE PER 21 DAY CYCLE)
  2. CORTICOSTEROID NOS [Concomitant]
     Active Substance: CORTICOSTEROID NOS
     Indication: METASTASES TO CENTRAL NERVOUS SYSTEM
     Dosage: UNK

REACTIONS (3)
  - Lymphopenia [Not Recovered/Not Resolved]
  - Death [Fatal]
  - Pneumocystis jirovecii pneumonia [Not Recovered/Not Resolved]
